FAERS Safety Report 21966511 (Version 5)
Quarter: 2023Q2

REPORT INFORMATION
  Report Type: Report from Study
  Country: TR (occurrence: TR)
  Receive Date: 20230208
  Receipt Date: 20230413
  Transmission Date: 20230721
  Serious: Yes (Other)
  Sender: FDA-Public Use
  Company Number: TR-ABBVIE-4297577

PATIENT
  Sex: Female
  Weight: 85 kg

DRUGS (9)
  1. CARBIDOPA\LEVODOPA [Suspect]
     Active Substance: CARBIDOPA\LEVODOPA
     Indication: Parkinson^s disease
     Dosage: MORNING DOSE (ML): 6.00 CONTINUOUS DOSE (ML): 3.70 EXTRA DOSE (ML): 1.00
     Route: 050
     Dates: start: 20221221, end: 202303
  2. CARBIDOPA\LEVODOPA [Suspect]
     Active Substance: CARBIDOPA\LEVODOPA
     Dosage: MORNING DOSE (ML): 6.00 CONTINUOUS DOSE (ML): 3.70 EXTRA DOSE (ML): 1.00
     Route: 050
     Dates: start: 20230314, end: 20230410
  3. LERCANIDIPINE HYDROCHLORIDE [Concomitant]
     Active Substance: LERCANIDIPINE HYDROCHLORIDE
     Indication: Hypertension
     Dosage: FORM STRENGTH: 10 MILLIGRAM
     Route: 048
  4. DOPADEX SR [Concomitant]
     Indication: Parkinson^s disease
     Dosage: 100 MILLIGRAM
     Route: 048
  5. CEDRINA [Concomitant]
     Indication: Depression
     Dosage: FORM STRENGTH: 25 MILLIGRAM
     Route: 048
  6. LERCANIDIPINE HYDROCHLORIDE [Concomitant]
     Active Substance: LERCANIDIPINE HYDROCHLORIDE
     Indication: Hypertension
     Dosage: 10 MILLIGRAM
     Route: 048
  7. DOPADEX SR [Concomitant]
     Indication: Parkinson^s disease
     Dosage: FORM STRENGTH: 100 MILLIGRAM
     Route: 048
  8. CEDRINA [Concomitant]
     Indication: Depression
     Dosage: 12.5 MILLIGRAM
     Route: 048
  9. QUETIAPINE FUMARATE [Concomitant]
     Active Substance: QUETIAPINE FUMARATE
     Indication: Depression
     Dosage: 12.5 MILLIGRAM
     Route: 048

REACTIONS (2)
  - Depressed level of consciousness [Not Recovered/Not Resolved]
  - Wrong technique in device usage process [Recovered/Resolved]

NARRATIVE: CASE EVENT DATE: 20230410
